FAERS Safety Report 4555037-9 (Version None)
Quarter: 2004Q4

REPORT INFORMATION
  Report Type: 
  Country: None (occurrence: None)
  Receive Date: 20041217
  Receipt Date: 20040714
  Transmission Date: 20050328
  Serious: No
  Sender: FDA-Public Use
  Company Number: 2004-BP-04680BP

PATIENT
  Age: 73 Year
  Sex: Female

DRUGS (2)
  1. SPIRIVA [Suspect]
     Dosage: (18 MCG), IH
     Route: 055
  2. SPIRIVA [Suspect]

REACTIONS (1)
  - DRUG INEFFECTIVE [None]
